FAERS Safety Report 6674290-9 (Version None)
Quarter: 2010Q1

REPORT INFORMATION
  Report Type: 
  Country: None (occurrence: None)
  Receive Date: 20100329
  Receipt Date: 20090512
  Transmission Date: 20100710
  Serious: Yes (Other)
  Sender: FDA-Public Use
  Company Number: 2009197625

PATIENT
  Age: 59 Year
  Sex: Female
  Weight: 61 kg

DRUGS (11)
  1. GEODON [Suspect]
     Indication: BIPOLAR DISORDER
     Dosage: 160 MG, 1X/DAY, ORAL
     Route: 048
     Dates: start: 20080728, end: 20090403
  2. GEODON [Suspect]
     Indication: POST-TRAUMATIC STRESS DISORDER
     Dosage: 160 MG, 1X/DAY, ORAL
     Route: 048
     Dates: start: 20080728, end: 20090403
  3. AMBIEN [Concomitant]
  4. PREMARIN [Concomitant]
  5. HYDROCHLOROTHIAZIDE [Concomitant]
  6. INDERAL [Concomitant]
  7. SINGULAIR [Concomitant]
  8. NIASPAN [Concomitant]
  9. LIPITOR [Concomitant]
  10. SYNTHROID [Concomitant]
  11. PROGESTIN (PROGESTERONE) [Concomitant]

REACTIONS (2)
  - EXTRAPYRAMIDAL DISORDER [None]
  - TARDIVE DYSKINESIA [None]
